FAERS Safety Report 14501958 (Version 1)
Quarter: 2018Q1

REPORT INFORMATION
  Report Type: Spontaneous
  Country: CZ (occurrence: CZ)
  Receive Date: 20180208
  Receipt Date: 20180208
  Transmission Date: 20180509
  Serious: Yes (Other)
  Sender: FDA-Public Use
  Company Number: CZ-BRISTOL-MYERS SQUIBB COMPANY-BMS-2018-007443

PATIENT
  Age: 68 Year
  Sex: Female

DRUGS (2)
  1. WARFARIN SODIUM. [Suspect]
     Active Substance: WARFARIN SODIUM
     Indication: PRODUCT USED FOR UNKNOWN INDICATION
     Dosage: 5 MG, (ALTERNATING DOSE OF 2.5 AND 5 MG, DAILY)
     Route: 065
  2. WARFARIN SODIUM. [Suspect]
     Active Substance: WARFARIN SODIUM
     Indication: ATRIAL FIBRILLATION
     Dosage: 2.5 MG, (ALTERNATING DOSE OF 2.5 AND 5 MG, DAILY)
     Route: 065

REACTIONS (4)
  - Myelopathy [Unknown]
  - Spinal epidural haemorrhage [Unknown]
  - Cervical spinal stenosis [Unknown]
  - Spinal epidural haematoma [Recovered/Resolved]
